FAERS Safety Report 17547843 (Version 1)
Quarter: 2020Q1

REPORT INFORMATION
  Report Type: Spontaneous
  Country: TR (occurrence: TR)
  Receive Date: 20200316
  Receipt Date: 20200316
  Transmission Date: 20200409
  Serious: Yes (Hospitalization)
  Sender: FDA-Public Use
  Company Number: TR-ABBVIE-20K-161-3317746-00

PATIENT
  Sex: Male
  Weight: 85 kg

DRUGS (2)
  1. DUODOPA [Suspect]
     Active Substance: CARBIDOPA\LEVODOPA
     Dosage: MORNING DOSE (ML): 7.00 CONTINUOUS DOSE  (ML): 3.30 EXTRA DOSE (ML): 1.50
     Route: 050
     Dates: start: 20200303, end: 20200310
  2. DUODOPA [Suspect]
     Active Substance: CARBIDOPA\LEVODOPA
     Indication: PARKINSON^S DISEASE
     Dosage: MORNING DOSE (ML): 7.00 CONTINUOUS DOSE  (ML): 3.50 EXTRA DOSE (ML): 1.50
     Route: 050
     Dates: start: 20190423, end: 20200303

REACTIONS (5)
  - Embedded device [Recovered/Resolved]
  - Product dose omission [Unknown]
  - Device leakage [Unknown]
  - Large intestine perforation [Recovered/Resolved]
  - Gastric perforation [Recovered/Resolved]
